FAERS Safety Report 7328699-0 (Version None)
Quarter: 2011Q1

REPORT INFORMATION
  Report Type: 
  Country: None (occurrence: None)
  Receive Date: 20110303
  Receipt Date: 20110223
  Transmission Date: 20110831
  Serious: Yes (Other)
  Sender: FDA-Public Use
  Company Number: JP-ROCHE-745979

PATIENT
  Sex: Female
  Weight: 54 kg

DRUGS (27)
  1. 5-FU [Concomitant]
     Dosage: ROUTE: INTRAVENOUS BOLUS
     Route: 040
     Dates: start: 20081126, end: 20081126
  2. 5-FU [Concomitant]
     Dosage: ROUTE: INTRAVENOUS DRIP
     Route: 040
     Dates: start: 20081126
  3. 5-FU [Concomitant]
     Dosage: ROUTE: INTRAVENOUS BOLUS
     Route: 040
     Dates: start: 20081210, end: 20081210
  4. ELPLAT [Concomitant]
     Route: 041
     Dates: start: 20081210, end: 20081210
  5. KYTRIL [Concomitant]
     Route: 042
     Dates: start: 20090302, end: 20100226
  6. AVASTIN [Suspect]
     Route: 041
     Dates: start: 20081210, end: 20081210
  7. AVASTIN [Suspect]
     Dosage: DOSAGE IS UNCERTAIN.
     Route: 041
     Dates: start: 20091001
  8. ISOVORIN [Concomitant]
     Dosage: DOSAGE IS UNCERTAIN.
     Route: 041
     Dates: start: 20091001
  9. 5-FU [Concomitant]
     Dosage: ROUTE: INTRAVENOUS BOLUS
     Route: 040
     Dates: start: 20090302, end: 20091009
  10. 5-FU [Concomitant]
     Dosage: ROUTE: INTRAVENOUS DRIP
     Route: 040
     Dates: start: 20090302, end: 20091001
  11. DECADRON [Suspect]
     Dosage: DURATION: 362 DAY(S)
     Route: 042
     Dates: start: 20090302, end: 20100226
  12. ISOVORIN [Concomitant]
     Route: 041
     Dates: start: 20090302, end: 20091009
  13. AVASTIN [Suspect]
     Route: 041
     Dates: start: 20090302, end: 20091009
  14. ISOVORIN [Concomitant]
     Route: 041
     Dates: start: 20081210, end: 20081210
  15. AVASTIN [Suspect]
     Indication: COLON CANCER METASTATIC
     Route: 041
     Dates: start: 20081126, end: 20081126
  16. OXYCONTIN [Concomitant]
     Route: 048
     Dates: end: 20100715
  17. SOLANAX [Concomitant]
     Route: 048
     Dates: end: 20100819
  18. IRINOTECAN HYDROCHLORIDE [Concomitant]
     Route: 041
     Dates: start: 20091001
  19. VOLTAREN [Suspect]
     Route: 048
     Dates: end: 20100917
  20. 5-FU [Concomitant]
     Dosage: DOSAGE IS UNCERTAIN, INTRAVENOUS DRIP
     Route: 040
     Dates: start: 20091001
  21. PURSENNID [Concomitant]
     Route: 048
     Dates: end: 20100910
  22. ISOVORIN [Concomitant]
     Route: 041
     Dates: start: 20081126, end: 20081126
  23. 5-FU [Concomitant]
     Dosage: DOSAGE IS UNCERTAIN.
     Route: 040
     Dates: start: 20091001
  24. ELPLAT [Concomitant]
     Route: 041
     Dates: start: 20090302, end: 20091009
  25. 5-FU [Concomitant]
     Dosage: ROUTE: INTRAVENOUS DRIP
     Route: 040
     Dates: start: 20081210, end: 20081201
  26. ELPLAT [Concomitant]
     Route: 041
     Dates: start: 20081126, end: 20081126
  27. GASTER D [Concomitant]
     Route: 048
     Dates: end: 20100917

REACTIONS (2)
  - STOMATITIS [None]
  - OSTEONECROSIS OF JAW [None]
